FAERS Safety Report 18242872 (Version 1)
Quarter: 2020Q3

REPORT INFORMATION
  Report Type: Spontaneous
  Country: US (occurrence: US)
  Receive Date: 20200908
  Receipt Date: 20200908
  Transmission Date: 20201103
  Serious: No
  Sender: FDA-Public Use
  Company Number: US-EMD SERONO-9182850

PATIENT
  Age: 57 Year
  Sex: Female

DRUGS (1)
  1. MAVENCLAD [Suspect]
     Active Substance: CLADRIBINE
     Indication: MULTIPLE SCLEROSIS
     Dosage: CYCLE ONE THERAPY
     Route: 048
     Dates: start: 20200731

REACTIONS (2)
  - Headache [Unknown]
  - Hot flush [Unknown]

NARRATIVE: CASE EVENT DATE: 20200801
